FAERS Safety Report 8083757-0 (Version None)
Quarter: 2012Q1

REPORT INFORMATION
  Report Type: 
  Country: None (occurrence: None)
  Receive Date: 20120128
  Receipt Date: 20110209
  Transmission Date: 20120608
  Serious: Yes (Other)
  Sender: FDA-Public Use
  Company Number: US-ABBOTT-11P-163-0700244-00

PATIENT
  Sex: Male
  Weight: 90.8 kg

DRUGS (5)
  1. GEMFIBROZIL [Concomitant]
     Indication: BLOOD CHOLESTEROL INCREASED
  2. HUMIRA [Suspect]
  3. ASPIRIN [Concomitant]
     Indication: THROMBOSIS
  4. WARFARIN SODIUM [Concomitant]
     Indication: THROMBOSIS
  5. HUMIRA [Suspect]
     Indication: RHEUMATOID ARTHRITIS
     Dates: start: 20020101

REACTIONS (2)
  - SQUAMOUS CELL CARCINOMA OF SKIN [None]
  - MALIGNANT MELANOMA IN SITU [None]
